FAERS Safety Report 6509198-2 (Version None)
Quarter: 2009Q4

REPORT INFORMATION
  Report Type: 
  Country: None (occurrence: None)
  Receive Date: 20091221
  Receipt Date: 20090423
  Transmission Date: 20100525
  Serious: No
  Sender: FDA-Public Use
  Company Number: US-TYCO HEALTHCARE/MALLINCKRODT-T200900952

PATIENT
  Sex: Female

DRUGS (2)
  1. ULTRA-TECHNEKOW [Suspect]
     Indication: RADIOISOTOPE SCAN
     Dosage: 12.3 MCI, SINGLE
     Route: 042
     Dates: start: 20090403, end: 20090403
  2. TECHNETIUM TC 99M GENERATOR [Suspect]
     Indication: SCAN THYROID GLAND
     Dosage: UNK
     Route: 042
     Dates: start: 20090403, end: 20090403

REACTIONS (3)
  - ERYTHEMA [None]
  - HEADACHE [None]
  - PRURITUS [None]
